FAERS Safety Report 5213623-7 (Version None)
Quarter: 2007Q1

REPORT INFORMATION
  Report Type: 
  Country: None (occurrence: None)
  Receive Date: 20070119
  Receipt Date: 20070109
  Transmission Date: 20070707
  Serious: Yes (Other)
  Sender: FDA-Public Use
  Company Number: US-PFIZER INC-2005132362

PATIENT
  Sex: Male

DRUGS (4)
  1. NEURONTIN [Suspect]
     Indication: NEURALGIA
  2. ANALGESICS [Suspect]
  3. ZESTRIL [Concomitant]
  4. VALIUM [Concomitant]
     Dates: start: 19990101, end: 20050905

REACTIONS (16)
  - AGGRESSION [None]
  - AGORAPHOBIA [None]
  - ANGER [None]
  - ANTISOCIAL PERSONALITY DISORDER [None]
  - CONFUSIONAL STATE [None]
  - DEPRESSION [None]
  - HOSTILITY [None]
  - IMPULSIVE BEHAVIOUR [None]
  - INSOMNIA [None]
  - INTENTIONAL OVERDOSE [None]
  - MEMORY IMPAIRMENT [None]
  - MENTAL IMPAIRMENT [None]
  - MOOD SWINGS [None]
  - PARANOIA [None]
  - SUICIDAL IDEATION [None]
  - SUICIDE ATTEMPT [None]
